FAERS Safety Report 16817968 (Version 1)
Quarter: 2019Q3

REPORT INFORMATION
  Report Type: Spontaneous
  Country: GB (occurrence: GB)
  Receive Date: 20190917
  Receipt Date: 20190917
  Transmission Date: 20191005
  Serious: Yes (Hospitalization, Other)
  Sender: FDA-Public Use
  Company Number: GB-MYLANLABS-2019M1086731

PATIENT
  Age: 91 Year
  Sex: Female

DRUGS (11)
  1. FOLIC ACID. [Concomitant]
     Active Substance: FOLIC ACID
     Dosage: 5 MILLIGRAM, QD (FOR 2 MONTHS)
     Dates: start: 20190118
  2. AMOXICILLIN. [Concomitant]
     Active Substance: AMOXICILLIN
     Dosage: 1500 MILLIGRAM, QD
     Dates: start: 20190225
  3. CETRABEN                           /01690401/ [Concomitant]
     Dosage: 4 DOSAGE FORM, QD
     Dates: start: 20190124
  4. PARACETAMOL [Concomitant]
     Active Substance: ACETAMINOPHEN
     Dosage: 500 MILLIGRAM (1 TO 2 UP TO 4 TIMES DAILY)
     Dates: start: 20190124
  5. ACIDEX                             /01521901/ [Concomitant]
     Active Substance: CALCIUM CARBONATE\SODIUM ALGINATE\SODIUM BICARBONATE
     Dosage: 10 MILLILITER (AFTER MEALS AND AT BED TIME)
     Dates: start: 20190320
  6. FLUCLOXACILLIN [Concomitant]
     Active Substance: FLUCLOXACILLIN
     Dosage: 2000 MILLIGRAM, QD
     Dates: start: 20190402
  7. OMEPRAZOLE. [Suspect]
     Active Substance: OMEPRAZOLE
     Indication: PRODUCT USED FOR UNKNOWN INDICATION
     Dosage: 20 MILLIGRAM
     Route: 048
  8. DIAZEPAM. [Concomitant]
     Active Substance: DIAZEPAM
     Dosage: 2 MILLIGRAM, QD
     Dates: start: 20190320
  9. DOXYCYCLINE. [Concomitant]
     Active Substance: DOXYCYCLINE
     Dosage: 100 MILLIGRAM (2 IMMEDIATELY THEN ONCE DAILY)
     Dates: start: 20190311
  10. SALAMOL                            /00139501/ [Concomitant]
     Dosage: 100 MICROGRAM (1 TO 2 PUFFS UP TO 4 TIMES DAILY)
     Dates: start: 20190124
  11. FERROUS FUMARATE [Concomitant]
     Active Substance: FERROUS FUMARATE
     Dosage: 420 MILLIGRAM, QD (FOR 2 MONTHS THEN REPEAT BLOOD TEST)
     Dates: start: 20190118

REACTIONS (3)
  - Dyspnoea [Unknown]
  - Hyponatraemia [Recovering/Resolving]
  - Cardiac failure congestive [Unknown]

NARRATIVE: CASE EVENT DATE: 20190320
